FAERS Safety Report 19920408 (Version 1)
Quarter: 2021Q4

REPORT INFORMATION
  Report Type: Spontaneous
  Country: NL (occurrence: NL)
  Receive Date: 20211006
  Receipt Date: 20211006
  Transmission Date: 20220304
  Serious: Yes (Other)
  Sender: FDA-Public Use
  Company Number: NL-LRB-00685235

PATIENT
  Sex: Male
  Weight: 94 kg

DRUGS (2)
  1. VALSARTAN [Suspect]
     Active Substance: VALSARTAN
     Indication: Hypertension
     Dosage: 40 MILLIGRAM, ONCE A DAY(1X PER DAY 1 TABLET)
     Route: 065
     Dates: start: 20210906, end: 20210914
  2. HYPROMELLOSES [Concomitant]
     Active Substance: HYPROMELLOSES
     Indication: Product used for unknown indication
     Dosage: 3 MILLIGRAM PER MILLILETER(EYE DROP,3 MG/ML )
     Route: 065

REACTIONS (5)
  - Angioedema [Recovering/Resolving]
  - Malaise [Recovering/Resolving]
  - Mouth swelling [Recovering/Resolving]
  - Pharyngeal swelling [Recovering/Resolving]
  - Pain [Recovering/Resolving]
